FAERS Safety Report 6866956-2 (Version None)
Quarter: 2010Q3

REPORT INFORMATION
  Report Type: 
  Country: None (occurrence: None)
  Receive Date: 20100722
  Receipt Date: 20100713
  Transmission Date: 20110219
  Serious: Yes (Hospitalization)
  Sender: FDA-Public Use
  Company Number: JP-ROCHE-672807

PATIENT
  Sex: Female

DRUGS (24)
  1. TOCILIZUMAB [Suspect]
     Indication: RHEUMATOID ARTHRITIS
     Route: 042
     Dates: start: 20090813, end: 20090813
  2. TOCILIZUMAB [Suspect]
     Route: 042
     Dates: start: 20090910, end: 20090910
  3. TOCILIZUMAB [Suspect]
     Route: 042
     Dates: start: 20091008, end: 20091008
  4. TOCILIZUMAB [Suspect]
     Route: 042
     Dates: start: 20091112, end: 20091112
  5. TOCILIZUMAB [Suspect]
     Route: 042
     Dates: start: 20091210, end: 20091210
  6. TOCILIZUMAB [Suspect]
     Route: 042
     Dates: start: 20100114, end: 20100114
  7. TOCILIZUMAB [Suspect]
     Route: 042
     Dates: start: 20100219
  8. PREDONINE [Suspect]
     Indication: RHEUMATOID ARTHRITIS
     Route: 048
     Dates: end: 20090813
  9. PREDONINE [Suspect]
     Route: 048
     Dates: start: 20090814, end: 20091007
  10. PREDONINE [Suspect]
     Route: 048
     Dates: start: 20091008, end: 20091123
  11. PREDONINE [Suspect]
     Route: 048
     Dates: start: 20091124, end: 20100208
  12. PREDNISOLONE [Suspect]
     Indication: RHEUMATOID ARTHRITIS
     Route: 048
     Dates: end: 20090819
  13. AZULFIDINE [Concomitant]
     Dosage: DRUG REPORTED AS: AZULFIDINE-EN (SALAZOSULFAPYRIDINE)
     Route: 048
     Dates: end: 20090820
  14. CYTOTEC [Concomitant]
     Route: 048
  15. BUSCOPAN [Concomitant]
     Dosage: DRUG REPORTED AS: BUSCOPAN (SCOPOLAMINE BUTYLBROMIDE)
     Route: 048
  16. BONALON [Concomitant]
     Dosage: DRUG REPORTED AS: BONALON 5 MG (ALENDRONATE SODIUM HYDRATE)
     Route: 048
  17. LOXONIN [Concomitant]
     Dosage: DRUG REPORTED AS: LOXONIN (LOXOPROFEN SODIUM)
     Route: 048
  18. SELBEX [Concomitant]
     Route: 048
  19. MS ON SHIPPU [Concomitant]
     Dosage: DRUG REPORTED AS: MS ONSHIPPU (CATAPLASMATA)   DOSE FORM: TAPE
     Route: 061
  20. VOLTAREN [Concomitant]
     Dosage: DRUG REPORTED AS: VOLTAREN (DICLOFENAC SODIUM)
     Route: 061
  21. KETOPROFEN [Concomitant]
     Dosage: DOSE FORM: TAPE
     Route: 061
  22. AZELASTINE HCL [Concomitant]
     Dosage: DRUG REPORTED AS: AZEPTIN (AZELASTINE HYDROCHLORIDE)
     Route: 048
  23. TAKEPRON [Concomitant]
     Route: 048
  24. HEAVY MAGNESIUM OXIDE [Concomitant]
     Route: 048

REACTIONS (9)
  - ALANINE AMINOTRANSFERASE INCREASED [None]
  - ASPARTATE AMINOTRANSFERASE INCREASED [None]
  - BLOOD ALKALINE PHOSPHATASE INCREASED [None]
  - CHEST PAIN [None]
  - COMPRESSION FRACTURE [None]
  - HAEMOCHROMATOSIS [None]
  - HEPATIC FUNCTION ABNORMAL [None]
  - NECK PAIN [None]
  - SPINAL COMPRESSION FRACTURE [None]
